FAERS Safety Report 10062976 (Version 4)
Quarter: 2015Q2

REPORT INFORMATION
  Report Type: Spontaneous
  Country: US (occurrence: US)
  Receive Date: 20140407
  Receipt Date: 20150630
  Transmission Date: 20150821
  Serious: Yes (Life-Threatening, Hospitalization, Disabling, Other)
  Sender: FDA-Public Use
  Company Number: US-MERCK-1404USA003568

PATIENT
  Sex: Male
  Weight: 99.77 kg

DRUGS (1)
  1. JANUVIA [Suspect]
     Active Substance: SITAGLIPTIN PHOSPHATE
     Indication: TYPE 2 DIABETES MELLITUS
     Dosage: 100 MG, QD
     Route: 048
     Dates: start: 20070302, end: 20080229

REACTIONS (55)
  - Pancreaticoduodenectomy [Unknown]
  - Generalised oedema [Unknown]
  - Dehydration [Unknown]
  - Spinal operation [Unknown]
  - Splenic haematoma [Unknown]
  - Vestibular disorder [Unknown]
  - Dyslipidaemia [Unknown]
  - Contusion [Unknown]
  - Dizziness [Unknown]
  - Alcoholism [Unknown]
  - Blood potassium decreased [Unknown]
  - Oesophagitis [Unknown]
  - Back pain [Not Recovered/Not Resolved]
  - Metastases to liver [Unknown]
  - Splenic rupture [Unknown]
  - Orthostatic hypotension [Unknown]
  - Pancreatitis chronic [Not Recovered/Not Resolved]
  - Rhonchi [Unknown]
  - Anaemia of chronic disease [Unknown]
  - Drug screen positive [Unknown]
  - Syncope [Unknown]
  - Functional gastrointestinal disorder [Recovered/Resolved]
  - Anxiety disorder [Unknown]
  - Pancreatic neoplasm [Unknown]
  - Chills [Unknown]
  - Electrocardiogram T wave inversion [Unknown]
  - Cardiac failure congestive [Unknown]
  - Abdominal pain [Unknown]
  - Gastrointestinal disorder [Unknown]
  - Gastrostomy [Unknown]
  - Clostridium difficile colitis [Recovered/Resolved]
  - Osteoarthritis [Unknown]
  - Left ventricular dysfunction [Unknown]
  - Drug dependence [Unknown]
  - Malnutrition [Unknown]
  - Knee operation [Unknown]
  - Hepatic lesion [Unknown]
  - Mitral valve incompetence [Unknown]
  - Atelectasis [Unknown]
  - Radiotherapy [Unknown]
  - Failure to thrive [Unknown]
  - Surgery [Unknown]
  - Orchidectomy [Unknown]
  - Malnutrition [Unknown]
  - Shoulder operation [Unknown]
  - Depression [Unknown]
  - Cough [Unknown]
  - Knee arthroplasty [Unknown]
  - Drug ineffective [Unknown]
  - Adenocarcinoma pancreas [Unknown]
  - Testis cancer [Unknown]
  - Wheezing [Unknown]
  - Fall [Unknown]
  - Sinus tachycardia [Unknown]
  - Headache [Unknown]

NARRATIVE: CASE EVENT DATE: 201204
